FAERS Safety Report 19198624 (Version 1)
Quarter: 2021Q2

REPORT INFORMATION
  Report Type: Spontaneous
  Country: US (occurrence: US)
  Receive Date: 20210429
  Receipt Date: 20210429
  Transmission Date: 20210717
  Serious: No
  Sender: FDA-Public Use
  Company Number: NVSC2021US097408

PATIENT
  Sex: Female

DRUGS (1)
  1. TAFINLAR [Suspect]
     Active Substance: DABRAFENIB MESYLATE
     Indication: THYROID NEOPLASM
     Dosage: 75 MG, Q12H
     Route: 048
     Dates: start: 20210426

REACTIONS (2)
  - Headache [Unknown]
  - Pyrexia [Unknown]
